FAERS Safety Report 7344064-4 (Version None)
Quarter: 2011Q1

REPORT INFORMATION
  Report Type: 
  Country: None (occurrence: None)
  Receive Date: 20110310
  Receipt Date: 20100524
  Transmission Date: 20110831
  Serious: No
  Sender: FDA-Public Use
  Company Number: A0861005A

PATIENT
  Sex: Female

DRUGS (1)
  1. NICORETTE (MINT) [Suspect]

REACTIONS (4)
  - CHEST PAIN [None]
  - THROAT IRRITATION [None]
  - NAUSEA [None]
  - ORAL DISCOMFORT [None]
